FAERS Safety Report 9893044 (Version 2)
Quarter: 2014Q1

REPORT INFORMATION
  Report Type: Spontaneous
  Country: AU (occurrence: AU)
  Receive Date: 20140213
  Receipt Date: 20140214
  Transmission Date: 20141002
  Serious: Yes (Other)
  Sender: FDA-Public Use
  Company Number: AU-ROCHE-1348452

PATIENT
  Age: 58 Year
  Sex: Female

DRUGS (6)
  1. CEFTRIAXONE [Suspect]
     Indication: PRODUCT USED FOR UNKNOWN INDICATION
     Route: 042
     Dates: start: 20131212
  2. AMPICILLIN [Suspect]
     Indication: PRODUCT USED FOR UNKNOWN INDICATION
     Route: 042
     Dates: start: 20131212
  3. CHOLECALCIFEROL [Concomitant]
     Route: 065
     Dates: start: 20131120
  4. ENOXAPARIN [Concomitant]
     Route: 065
     Dates: start: 20131120
  5. GENTAMICIN SULPHATE [Concomitant]
     Route: 065
     Dates: start: 20131212
  6. PANTOPRAZOLE [Concomitant]
     Route: 065
     Dates: start: 20131120

REACTIONS (2)
  - Urticaria [Recovered/Resolved]
  - Swelling [Recovered/Resolved]
